FAERS Safety Report 23436281 (Version 2)
Quarter: 2024Q1

REPORT INFORMATION
  Report Type: Spontaneous
  Country: GB (occurrence: GB)
  Receive Date: 20240124
  Receipt Date: 20240201
  Transmission Date: 20240410
  Serious: Yes (Other)
  Sender: FDA-Public Use
  Company Number: GB-CELLTRION INC.-2024GB001147

PATIENT

DRUGS (3)
  1. INFLIXIMAB [Suspect]
     Active Substance: INFLIXIMAB
     Indication: Colitis
     Dosage: 1ST JAB WAS ON 18TH DECEMBER
     Route: 058
  2. INFLIXIMAB [Suspect]
     Active Substance: INFLIXIMAB
     Dosage: SECOND JAB WAS 1ST JAN
     Route: 058
  3. INFLIXIMAB [Suspect]
     Active Substance: INFLIXIMAB
     Indication: Colitis
     Route: 042

REACTIONS (11)
  - Colitis [Unknown]
  - Skin burning sensation [Unknown]
  - Feeling hot [Unknown]
  - Oropharyngeal pain [Unknown]
  - Sleep disorder [Unknown]
  - Dizziness [Unknown]
  - Headache [Unknown]
  - Fatigue [Unknown]
  - Malaise [Unknown]
  - Rash papular [Unknown]
  - Intentional dose omission [Unknown]
